FAERS Safety Report 22198324 (Version 1)
Quarter: 2023Q2

REPORT INFORMATION
  Report Type: Report from Study
  Country: JP (occurrence: None)
  Receive Date: 20230411
  Receipt Date: 20230411
  Transmission Date: 20230722
  Serious: Yes (Other)
  Sender: FDA-Public Use
  Company Number: 2023A035219

PATIENT
  Age: 89 Year
  Sex: Female
  Weight: 40 kg

DRUGS (17)
  1. ONDEXXYA [Suspect]
     Active Substance: ANDEXANET ALFA
     Indication: Cerebral haemorrhage
     Dosage: 400 MG + 480 MG
     Route: 042
     Dates: start: 20221028
  2. EDOXABAN TOSYLATE [Concomitant]
     Active Substance: EDOXABAN TOSYLATE
     Indication: Ischaemic stroke
     Route: 065
     Dates: end: 202210
  3. LACTATED RINGERS SOLUTION [Concomitant]
     Active Substance: CALCIUM CHLORIDE\POTASSIUM CHLORIDE\SODIUM CHLORIDE\SODIUM LACTATE
     Indication: Cerebral haemorrhage
     Dosage: CONTINUOUS ADMINISTRATION, NUMBER OF SEPARATE DOSAGES UNKNOWN
     Route: 065
     Dates: start: 20221028, end: 20221028
  4. OMEPRAZOLE [Concomitant]
     Active Substance: OMEPRAZOLE
     Indication: Cerebral haemorrhage
     Route: 065
     Dates: start: 20221027, end: 20221030
  5. SOLDEM 3A [Concomitant]
     Active Substance: CARBOHYDRATES\POTASSIUM CHLORIDE\SODIUM CHLORIDE\SODIUM LACTATE
     Indication: Cerebral haemorrhage
     Dosage: CONTINUOUS ADMINISTRATION, NUMBER OF SEPARATE DOSAGES UNKNOWN
     Route: 065
     Dates: start: 20221029, end: 20221101
  6. NICARDIPINE HYDROCHLORIDE [Concomitant]
     Active Substance: NICARDIPINE HYDROCHLORIDE
     Indication: Cerebral haemorrhage
     Dosage: DOSE UNKNOWN, ADJUSTED ACCORDING TO BLOOD PRESSURE
     Route: 065
     Dates: start: 20221027, end: 20221030
  7. MIDAZOLAM [Concomitant]
     Active Substance: MIDAZOLAM
     Dosage: BEFORE MRI TESTING
     Route: 065
     Dates: start: 20221102, end: 20221102
  8. AMINO ACIDS\DEXTROSE\ELECTROLYTES NOS\VITAMINS [Concomitant]
     Active Substance: AMINO ACIDS\DEXTROSE\ELECTROLYTES NOS\VITAMINS
     Indication: Cerebral haemorrhage
     Route: 065
     Dates: start: 20221101, end: 20221115
  9. VITAMINS [Concomitant]
     Active Substance: VITAMINS
     Indication: Cerebral haemorrhage
     Route: 065
     Dates: start: 20211101, end: 20221115
  10. LACTEC-G [Concomitant]
     Indication: Cerebral haemorrhage
     Route: 065
     Dates: start: 20221102, end: 20221104
  11. LANSOPRAZOLE [Concomitant]
     Active Substance: LANSOPRAZOLE
     Indication: Cerebral haemorrhage
     Route: 048
     Dates: start: 20221031, end: 20221124
  12. LANSOPRAZOLE [Concomitant]
     Active Substance: LANSOPRAZOLE
     Indication: Gastrooesophageal reflux disease
     Route: 048
     Dates: start: 20221031, end: 20221124
  13. AMLODIPINE [Concomitant]
     Active Substance: AMLODIPINE BESYLATE
     Indication: Cerebral haemorrhage
     Route: 048
     Dates: start: 20221031, end: 20221116
  14. SODIUM PICOSULFATE [Concomitant]
     Active Substance: SODIUM PICOSULFATE
     Dosage: ADJUSTED AT 10-15 DROPS/DOSE, AT THE TIME OF CONSTIPATION
     Route: 048
     Dates: start: 20221103
  15. MAGNESIUM OXIDE [Concomitant]
     Active Substance: MAGNESIUM OXIDE
     Indication: Cerebral haemorrhage
     Route: 048
     Dates: start: 20221107
  16. CALONAL [Concomitant]
     Active Substance: ACETAMINOPHEN
     Dosage: AT THE TIME OF PYREXIA
     Route: 048
     Dates: start: 20221112, end: 20221113
  17. SAMSCA [Concomitant]
     Active Substance: TOLVAPTAN
     Indication: Cardiac failure congestive
     Route: 048
     Dates: start: 20221114

REACTIONS (3)
  - Cerebral infarction [Recovered/Resolved]
  - Constipation [Not Recovered/Not Resolved]
  - Pyrexia [Recovered/Resolved]

NARRATIVE: CASE EVENT DATE: 20221101
